FAERS Safety Report 5850504-X (Version None)
Quarter: 2008Q3

REPORT INFORMATION
  Report Type: 
  Country: None (occurrence: None)
  Receive Date: 20080819
  Receipt Date: 20080807
  Transmission Date: 20090109
  Serious: Yes (Hospitalization)
  Sender: FDA-Public Use
  Company Number: DE-PFIZER INC-2008066846

PATIENT
  Sex: Female

DRUGS (3)
  1. SUTENT [Suspect]
     Indication: OVARIAN CANCER
     Route: 048
  2. TILIDINE [Concomitant]
     Route: 048
  3. REMIFEMIN [Concomitant]
     Route: 048

REACTIONS (1)
  - ASCITES [None]
